FAERS Safety Report 17845154 (Version 2)
Quarter: 2020Q2

REPORT INFORMATION
  Report Type: Report from Study
  Country: None (occurrence: ES)
  Receive Date: 20200601
  Receipt Date: 20200608
  Transmission Date: 20200714
  Serious: Yes (Hospitalization)
  Sender: FDA-Public Use
  Company Number: ES-ABBVIE-20K-144-3320732-00

PATIENT
  Age: 72 Year
  Sex: Male
  Weight: 70 kg

DRUGS (1)
  1. DUODOPA [Suspect]
     Active Substance: CARBIDOPA\LEVODOPA
     Indication: PARKINSON^S DISEASE
     Route: 050
     Dates: start: 20110201, end: 20200527

REACTIONS (5)
  - Stoma site odour [Recovered/Resolved]
  - Stoma site discharge [Recovered/Resolved]
  - Embedded device [Unknown]
  - Stoma site pain [Recovering/Resolving]
  - Stoma site hypergranulation [Unknown]

NARRATIVE: CASE EVENT DATE: 2020
